FAERS Safety Report 23770943 (Version 2)
Quarter: 2024Q2

REPORT INFORMATION
  Report Type: Report from Study
  Country: ES (occurrence: ES)
  Receive Date: 20240423
  Receipt Date: 20240604
  Transmission Date: 20240716
  Serious: Yes (Hospitalization, Other)
  Sender: FDA-Public Use
  Company Number: ES-AMNEAL PHARMACEUTICALS-2023-AMRX-04704

PATIENT

DRUGS (8)
  1. ONGENTYS [Suspect]
     Active Substance: OPICAPONE
     Indication: Parkinson^s disease
     Dosage: 50 MILLIGRAM, 1 /DAY
     Route: 065
     Dates: start: 20230302, end: 20240321
  2. ROPINIROLE HYDROCHLORIDE [Concomitant]
     Active Substance: ROPINIROLE HYDROCHLORIDE
     Indication: Parkinson^s disease
     Dosage: 16 MILLIGRAM, 2 /DAY
     Route: 065
     Dates: start: 20160324
  3. CARBIDOPA\LEVODOPA [Concomitant]
     Active Substance: CARBIDOPA\LEVODOPA
     Indication: Parkinson^s disease
     Dosage: 100/25 MG, 5 TIMES/DAY (TOTAL DAILY DOSE OF LEVODOPA: 750 MG)
     Route: 065
     Dates: start: 20180715
  4. AMANTADINE [AMANTADINE HYDROCHLORIDE] [Concomitant]
     Indication: Parkinson^s disease
     Dosage: 400 MILLIGRAM, 2 /DAY
     Route: 065
     Dates: start: 20210215
  5. RASAGILINE MESYLATE [Concomitant]
     Active Substance: RASAGILINE MESYLATE
     Indication: Parkinson^s disease
     Dosage: 1 MILLIGRAM, 1 /DAY
     Route: 065
     Dates: start: 20160215
  6. ATENOLOL [Concomitant]
     Active Substance: ATENOLOL
     Indication: Hypertension
     Dosage: UNK
     Route: 065
     Dates: start: 20061215
  7. ASPIRIN [Concomitant]
     Active Substance: ASPIRIN
     Indication: Hypertension
     Dosage: UNK
     Route: 065
     Dates: start: 20141115
  8. LANSOPRAZOLE [Concomitant]
     Active Substance: LANSOPRAZOLE
     Indication: Gastritis
     Dosage: UNK
     Route: 065
     Dates: start: 20060715

REACTIONS (6)
  - Device related infection [Recovered/Resolved]
  - Joint arthroplasty [Recovered/Resolved]
  - Pollakiuria [Recovered/Resolved]
  - Paraesthesia [Unknown]
  - Freezing phenomenon [Unknown]
  - Dysphonia [Unknown]

NARRATIVE: CASE EVENT DATE: 20230302
